FAERS Safety Report 13577409 (Version 1)
Quarter: 2017Q2

REPORT INFORMATION
  Report Type: Spontaneous
  Country: US (occurrence: US)
  Receive Date: 20170524
  Receipt Date: 20170524
  Transmission Date: 20170830
  Serious: Yes (Other)
  Sender: FDA-Public Use
  Company Number: US-JNJFOC-20170518090

PATIENT
  Age: 43 Year
  Sex: Male

DRUGS (2)
  1. ITRACONAZOLE. [Suspect]
     Active Substance: ITRACONAZOLE
     Indication: BLASTOMYCOSIS
     Dosage: FOR 46 DAYS
     Route: 048
  2. AMPHOTERICIN B. [Concomitant]
     Active Substance: AMPHOTERICIN B
     Indication: BLASTOMYCOSIS
     Route: 065

REACTIONS (4)
  - Electrocardiogram QT prolonged [Unknown]
  - Chronotropic incompetence [Unknown]
  - Hypokalaemia [Recovered/Resolved]
  - Sinus bradycardia [Unknown]
